FAERS Safety Report 4592508-3 (Version None)
Quarter: 2005Q1

REPORT INFORMATION
  Report Type: 
  Country: None (occurrence: None)
  Receive Date: 20050228
  Receipt Date: 20050201
  Transmission Date: 20050727
  Serious: Yes (Hospitalization)
  Sender: FDA-Public Use
  Company Number: US-ABBOTT-05P-163-0289074-00

PATIENT
  Sex: Female

DRUGS (1)
  1. TERAZOSIN HCL [Suspect]
     Indication: DRUG USE FOR UNKNOWN INDICATION

REACTIONS (5)
  - COMPRESSION FRACTURE [None]
  - DIPLOPIA [None]
  - FEELING ABNORMAL [None]
  - PNEUMONIA [None]
  - ROAD TRAFFIC ACCIDENT [None]
